FAERS Safety Report 9427527 (Version 1)
Quarter: 2013Q3

REPORT INFORMATION
  Report Type: Report from Study
  Country: US (occurrence: US)
  Receive Date: 20130730
  Receipt Date: 20130730
  Transmission Date: 20140515
  Serious: No
  Sender: FDA-Public Use
  Company Number: US-ABBOTT-12P-163-0983468-00

PATIENT
  Sex: Male
  Weight: 62.65 kg

DRUGS (6)
  1. NIASPAN (COATED) [Suspect]
     Indication: HIGH DENSITY LIPOPROTEIN DECREASED
     Dosage: EVERY NIGHT
     Dates: start: 201009, end: 201206
  2. NIASPAN (COATED) [Suspect]
     Dates: start: 20120915
  3. FISH OIL [Concomitant]
     Indication: PRODUCT USED FOR UNKNOWN INDICATION
  4. ASPIRIN [Concomitant]
     Indication: PRODUCT USED FOR UNKNOWN INDICATION
  5. GLUMEXA [Concomitant]
     Indication: PRODUCT USED FOR UNKNOWN INDICATION
  6. UNSPECIFIED MULTIVITAMIN [Concomitant]
     Indication: PRODUCT USED FOR UNKNOWN INDICATION

REACTIONS (2)
  - Dry mouth [Not Recovered/Not Resolved]
  - Pruritus generalised [Not Recovered/Not Resolved]
